FAERS Safety Report 10523189 (Version 1)
Quarter: 2014Q4

REPORT INFORMATION
  Report Type: Spontaneous
  Country: CN (occurrence: CN)
  Receive Date: 20141016
  Receipt Date: 20141016
  Transmission Date: 20150528
  Serious: Yes (Life-Threatening, Other)
  Sender: FDA-Public Use
  Company Number: CN-PFIZER INC-2014283340

PATIENT
  Age: 53 Year
  Sex: Female
  Weight: 60 kg

DRUGS (1)
  1. CELEBREX [Suspect]
     Active Substance: CELECOXIB
     Indication: INTERVERTEBRAL DISC DEGENERATION
     Dosage: 0.2 G, 1X/DAY
     Route: 048
     Dates: start: 20140416, end: 20140419

REACTIONS (4)
  - Ventricular extrasystoles [Recovering/Resolving]
  - Pruritus [Recovering/Resolving]
  - Cardiac arrest [Recovering/Resolving]
  - Torsade de pointes [Recovering/Resolving]

NARRATIVE: CASE EVENT DATE: 20140418
